FAERS Safety Report 5632397-9 (Version None)
Quarter: 2008Q1

REPORT INFORMATION
  Report Type: 
  Country: None (occurrence: None)
  Receive Date: 20080220
  Receipt Date: 20080206
  Transmission Date: 20080703
  Serious: Yes (Other)
  Sender: FDA-Public Use
  Company Number: BE-ABBOTT-08P-013-0438901-00

PATIENT
  Age: 58 Year
  Sex: Female
  Weight: 70 kg

DRUGS (1)
  1. REDUCTIL 15MG [Suspect]
     Indication: CENTRAL OBESITY
     Route: 048
     Dates: start: 20071101, end: 20071225

REACTIONS (3)
  - AMNESIA [None]
  - CONVULSION [None]
  - TRISMUS [None]
